FAERS Safety Report 5226233-2 (Version None)
Quarter: 2007Q1

REPORT INFORMATION
  Report Type: 
  Country: None (occurrence: None)
  Receive Date: 20070129
  Receipt Date: 20061130
  Transmission Date: 20070707
  Serious: Yes (Death)
  Sender: FDA-Public Use
  Company Number: T200601705

PATIENT
  Age: 26 Year
  Sex: 0

DRUGS (3)
  1. OXYCODONE HCL [Suspect]
  2. COCAINE(COCAINE) [Suspect]
  3. DIAZEPAM [Suspect]

REACTIONS (1)
  - CARDIO-RESPIRATORY ARREST [None]
